FAERS Safety Report 4289628-X (Version None)
Quarter: 2004Q1

REPORT INFORMATION
  Report Type: 
  Country: None (occurrence: None)
  Receive Date: 20040205
  Receipt Date: 20031030
  Transmission Date: 20041129
  Serious: Yes (Disabling)
  Sender: FDA-Public Use
  Company Number: WAES 0310USA00162

PATIENT
  Age: 67 Year
  Sex: Male

DRUGS (10)
  1. COZAAR [Suspect]
     Indication: ESSENTIAL HYPERTENSION
     Dosage: SEE IMAGE
     Route: 048
     Dates: start: 20000710, end: 20010527
  2. COZAAR [Suspect]
     Indication: ESSENTIAL HYPERTENSION
     Dosage: SEE IMAGE
     Route: 048
     Dates: start: 20010528, end: 20010708
  3. COZAAR [Suspect]
     Indication: ESSENTIAL HYPERTENSION
     Dosage: SEE IMAGE
     Route: 048
     Dates: start: 20010709, end: 20011125
  4. COZAAR [Suspect]
     Indication: ESSENTIAL HYPERTENSION
     Dosage: SEE IMAGE
     Route: 048
     Dates: start: 20011126, end: 20020114
  5. COZAAR [Suspect]
     Indication: ESSENTIAL HYPERTENSION
     Dosage: SEE IMAGE
     Route: 048
     Dates: start: 20020115, end: 20021125
  6. COZAAR [Suspect]
     Indication: ESSENTIAL HYPERTENSION
     Dosage: SEE IMAGE
     Route: 048
     Dates: start: 20021126
  7. ALPRENOLOL HYDROCHLORIDE [Concomitant]
  8. BENZBROMARONE [Concomitant]
  9. PHOSPHATE [Concomitant]
  10. MEXAZOLAM [Concomitant]

REACTIONS (1)
  - MACULAR DEGENERATION [None]
